FAERS Safety Report 4791714-2 (Version None)
Quarter: 2005Q4

REPORT INFORMATION
  Report Type: 
  Country: None (occurrence: None)
  Receive Date: 20051007
  Receipt Date: 20051003
  Transmission Date: 20060501
  Serious: Yes (Hospitalization)
  Sender: FDA-Public Use
  Company Number: 419054

PATIENT
  Age: 48 Year
  Sex: Female

DRUGS (4)
  1. ARTIST [Suspect]
     Indication: SINUS TACHYCARDIA
     Dosage: 25MG PER DAY
     Route: 048
     Dates: start: 20050406, end: 20050407
  2. ALTAT [Concomitant]
     Dates: start: 20050401, end: 20050405
  3. FERROMIA [Concomitant]
     Dates: start: 20050401
  4. MARZULENE [Concomitant]
     Dates: start: 20050406

REACTIONS (2)
  - RASH [None]
  - URTICARIA [None]
